FAERS Safety Report 7041466-0 (Version None)
Quarter: 2010Q4

REPORT INFORMATION
  Report Type: 
  Country: None (occurrence: None)
  Receive Date: 20101013
  Receipt Date: 20090901
  Transmission Date: 20110411
  Serious: No
  Sender: FDA-Public Use
  Company Number: US-ASTRAZENECA-2009SE10871

PATIENT
  Age: 816 Month
  Sex: Male
  Weight: 79.4 kg

DRUGS (16)
  1. SYMBICORT [Suspect]
     Indication: CHRONIC OBSTRUCTIVE PULMONARY DISEASE
     Dosage: 160/4.5, 2 PUFFS BID
     Route: 055
     Dates: start: 20090821
  2. ATENOLOL [Concomitant]
     Indication: BLOOD PRESSURE INCREASED
  3. ZOLOFT [Concomitant]
  4. SYNTHROID [Concomitant]
  5. POTASSIUM CHLORIDE [Concomitant]
  6. LASIX [Concomitant]
  7. PROMETHAZINE [Concomitant]
  8. BUTALBITAL AND APAP [Concomitant]
  9. ROBAXIN [Concomitant]
  10. VENTOLIN HFA [Concomitant]
     Dosage: 2 PUFFS TID PRN
  11. OMEPRAZOLE [Concomitant]
  12. ISOSORBIDE [Concomitant]
     Dosage: QPM
  13. REGLAN [Concomitant]
  14. ZOCOR [Concomitant]
     Indication: BLOOD CHOLESTEROL
  15. MIRAPEX [Concomitant]
     Indication: RESTLESS LEGS SYNDROME
  16. METHADONE [Concomitant]
     Dosage: 7 TABLET ONCE DAILY

REACTIONS (2)
  - DYSPHONIA [None]
  - SPUTUM DISCOLOURED [None]
